FAERS Safety Report 5493625-6 (Version None)
Quarter: 2007Q4

REPORT INFORMATION
  Report Type: 
  Country: None (occurrence: None)
  Receive Date: 20071015
  Receipt Date: 20070824
  Transmission Date: 20080405
  Serious: No
  Sender: FDA-Public Use
  Company Number: 2007SP002974

PATIENT
  Age: 76 Year
  Sex: Female
  Weight: 63.5036 kg

DRUGS (9)
  1. LUNESTA [Suspect]
     Indication: INSOMNIA
     Dosage: 3 MG;HS;ORAL;3 MG;PRN;ORAL;3MG;HS;ORAL
     Route: 048
     Dates: start: 20070101, end: 20070101
  2. LUNESTA [Suspect]
     Indication: INSOMNIA
     Dosage: 3 MG;HS;ORAL;3 MG;PRN;ORAL;3MG;HS;ORAL
     Route: 048
     Dates: start: 20070101, end: 20070801
  3. LUNESTA [Suspect]
     Indication: INSOMNIA
     Dosage: 3 MG;HS;ORAL;3 MG;PRN;ORAL;3MG;HS;ORAL
     Route: 048
     Dates: start: 20070822
  4. SYNTHROID [Concomitant]
  5. ZYRTEC [Concomitant]
  6. TOLTERODINE TARTRATE [Concomitant]
  7. SENNA [Concomitant]
  8. GINKGO BILOBA [Concomitant]
  9. VITAMIN CAP [Concomitant]

REACTIONS (1)
  - DRUG EFFECT DECREASED [None]
